FAERS Safety Report 8070953-1 (Version None)
Quarter: 2012Q1

REPORT INFORMATION
  Report Type: 
  Country: None (occurrence: None)
  Receive Date: 20120125
  Receipt Date: 20120119
  Transmission Date: 20120608
  Serious: Yes (Other)
  Sender: FDA-Public Use
  Company Number: US-MERCK-1201USA00431

PATIENT
  Age: 51 Year
  Sex: Male

DRUGS (1)
  1. IVEMEND [Suspect]
     Route: 041

REACTIONS (4)
  - ERYTHEMA [None]
  - HYPERSENSITIVITY [None]
  - BLOOD PRESSURE INCREASED [None]
  - DYSPNOEA [None]
